FAERS Safety Report 16908115 (Version 1)
Quarter: 2019Q4

REPORT INFORMATION
  Report Type: Report from Study
  Country: US (occurrence: US)
  Receive Date: 20191011
  Receipt Date: 20191011
  Transmission Date: 20200122
  Serious: Yes (Other)
  Sender: FDA-Public Use
  Company Number: US-TAKEDA-2016MPI007045

PATIENT
  Sex: Female

DRUGS (3)
  1. REVLIMID [Suspect]
     Active Substance: LENALIDOMIDE
     Indication: PLASMA CELL MYELOMA
     Dosage: UNK
     Route: 048
     Dates: start: 201305
  2. BORTEZOMIB. [Suspect]
     Active Substance: BORTEZOMIB
     Indication: PLASMA CELL MYELOMA
     Dosage: UNK
     Route: 058
     Dates: start: 201209
  3. DEXAMETHASONE. [Suspect]
     Active Substance: DEXAMETHASONE
     Indication: PLASMA CELL MYELOMA
     Dosage: UNK
     Route: 048
     Dates: start: 201305

REACTIONS (11)
  - Headache [Unknown]
  - Decreased activity [Unknown]
  - Feeling abnormal [Unknown]
  - Malaise [Unknown]
  - Plasma cell myeloma [Unknown]
  - Concussion [Unknown]
  - Back pain [Unknown]
  - Weight increased [Unknown]
  - Somnolence [Unknown]
  - Dizziness [Recovering/Resolving]
  - Fall [Unknown]
